FAERS Safety Report 8089627-6 (Version None)
Quarter: 2012Q1

REPORT INFORMATION
  Report Type: 
  Country: None (occurrence: None)
  Receive Date: 20120128
  Receipt Date: 20110706
  Transmission Date: 20120608
  Serious: No
  Sender: FDA-Public Use
  Company Number: US-ABBOTT-11P-163-0726316-00

PATIENT
  Sex: Female
  Weight: 62.652 kg

DRUGS (5)
  1. CYMBALTA [Concomitant]
     Indication: FIBROMYALGIA
  2. HUMIRA [Suspect]
     Indication: ANKYLOSING SPONDYLITIS
     Dates: start: 20110407
  3. CELEBREX [Concomitant]
     Indication: OSTEOARTHRITIS
  4. HUMIRA [Suspect]
     Indication: ARTHRITIS
  5. CRESTOR [Concomitant]
     Indication: BLOOD CHOLESTEROL INCREASED

REACTIONS (7)
  - NASOPHARYNGITIS [None]
  - DRY MOUTH [None]
  - DRUG INEFFECTIVE [None]
  - RASH [None]
  - HYPERHIDROSIS [None]
  - WEIGHT INCREASED [None]
  - DRUG EFFECT DECREASED [None]
